FAERS Safety Report 9095251 (Version 1)
Quarter: 2013Q1

REPORT INFORMATION
  Report Type: Spontaneous
  Country: US (occurrence: US)
  Receive Date: 20130201
  Receipt Date: 20130201
  Transmission Date: 20140127
  Serious: Yes (Other)
  Sender: FDA-Public Use
  Company Number: US-ASTRAZENECA-2013SE05083

PATIENT
  Age: 52 Year
  Sex: Female

DRUGS (3)
  1. BRILINTA [Suspect]
     Route: 048
  2. ASPIRIN [Concomitant]
     Indication: DRUG THERAPY
     Route: 048
  3. ASPIRIN [Concomitant]
     Indication: DRUG THERAPY
     Route: 048

REACTIONS (1)
  - Thrombosis in device [Unknown]
